FAERS Safety Report 24425953 (Version 1)
Quarter: 2024Q4

REPORT INFORMATION
  Report Type: Spontaneous
  Country: US (occurrence: US)
  Receive Date: 20241011
  Receipt Date: 20241011
  Transmission Date: 20250115
  Serious: Yes (Other)
  Sender: CELLTRION
  Company Number: US-CELLTRION INC.-2024US011395

PATIENT

DRUGS (1)
  1. INFLECTRA [Suspect]
     Active Substance: INFLIXIMAB-DYYB
     Indication: Crohn^s disease
     Dosage: 400MG EVERY 6 WEEKS, SUPPOSED TO BE 5MG PER KG THEY ROUND DOWN FOR WHATEVER REASON
     Route: 065

REACTIONS (10)
  - Adverse event [Unknown]
  - Frequent bowel movements [Not Recovered/Not Resolved]
  - Muscle spasms [Not Recovered/Not Resolved]
  - Nausea [Not Recovered/Not Resolved]
  - Product storage error [Unknown]
  - Insurance issue [Unknown]
  - Product use issue [Unknown]
  - Therapy interrupted [Unknown]
  - Underdose [Unknown]
  - Product dose omission issue [Unknown]

NARRATIVE: CASE EVENT DATE: 20240507
